FAERS Safety Report 10367252 (Version 1)
Quarter: 2014Q3

REPORT INFORMATION
  Report Type: Spontaneous
  Country: US (occurrence: None)
  Receive Date: 20140805
  Receipt Date: 20140805
  Transmission Date: 20150326
  Serious: No
  Sender: FDA-Public Use
  Company Number: None

PATIENT
  Age: 51 Year
  Sex: Male
  Weight: 102.06 kg

DRUGS (2)
  1. HUMIRA [Suspect]
     Active Substance: ADALIMUMAB
     Indication: COLITIS ULCERATIVE
     Dosage: 1 PEN, EVERY TWO WEEKS, GIVEN INTO/UNDER THE SKIN
     Dates: start: 20140802
  2. HUMIRA [Suspect]
     Active Substance: ADALIMUMAB
     Indication: RHEUMATOID ARTHRITIS
     Dosage: 1 PEN, EVERY TWO WEEKS, GIVEN INTO/UNDER THE SKIN
     Dates: start: 20140802

REACTIONS (4)
  - Pruritus [None]
  - Pain [None]
  - Erythema [None]
  - Arthropod sting [None]

NARRATIVE: CASE EVENT DATE: 20140804
